FAERS Safety Report 18181193 (Version 1)
Quarter: 2020Q3

REPORT INFORMATION
  Report Type: Spontaneous
  Country: US (occurrence: US)
  Receive Date: 20200821
  Receipt Date: 20200821
  Transmission Date: 20201103
  Serious: No
  Sender: FDA-Public Use
  Company Number: US-ALEXION-A202012071

PATIENT

DRUGS (1)
  1. SOLIRIS [Suspect]
     Active Substance: ECULIZUMAB
     Indication: MYASTHENIA GRAVIS
     Dosage: UNK
     Route: 065
     Dates: start: 2018

REACTIONS (5)
  - Heart rate increased [Unknown]
  - Chills [Unknown]
  - Vomiting [Unknown]
  - Nausea [Unknown]
  - Infusion related reaction [Unknown]
